FAERS Safety Report 9602533 (Version 3)
Quarter: 2013Q4

REPORT INFORMATION
  Report Type: Spontaneous
  Country: US (occurrence: US)
  Receive Date: 20131007
  Receipt Date: 20131120
  Transmission Date: 20140711
  Serious: No
  Sender: FDA-Public Use
  Company Number: US-PFIZER INC-2013282453

PATIENT
  Age: 26 Year
  Sex: Female
  Weight: 48.53 kg

DRUGS (9)
  1. LYRICA [Suspect]
     Indication: NEURALGIA
     Dosage: 75 MG, 2X/DAY
     Dates: start: 201309, end: 20130929
  2. LYRICA [Interacting]
     Dosage: UNK
  3. LYRICA [Interacting]
     Dosage: UNK
  4. OXYCODONE HYDROCHLORIDE [Interacting]
     Indication: NECK PAIN
     Dosage: 5 MG, EVERY 46 HOURS
     Dates: start: 201304
  5. OXYCODONE HYDROCHLORIDE [Interacting]
     Indication: MUSCULOSKELETAL PAIN
     Dosage: 10 MG, 1X/DAY
     Dates: start: 2013
  6. CYMBALTA [Interacting]
     Indication: DEPRESSION
     Dosage: 30 MG, 1X/DAY
     Dates: start: 2013
  7. CYMBALTA [Interacting]
     Indication: NECK PAIN
     Dosage: 60 MG, DAILY
     Dates: start: 2013
  8. CYMBALTA [Interacting]
     Indication: MUSCULOSKELETAL PAIN
     Dosage: UNK, DAILY
  9. VITAMIN D [Interacting]
     Dosage: UNK

REACTIONS (7)
  - Drug interaction [Unknown]
  - Middle insomnia [Unknown]
  - Night sweats [Unknown]
  - Hot flush [Unknown]
  - Somnolence [Unknown]
  - Pain [Unknown]
  - Drug ineffective [Unknown]
